FAERS Safety Report 15104326 (Version 2)
Quarter: 2018Q4

REPORT INFORMATION
  Report Type: Spontaneous
  Country: US (occurrence: US)
  Receive Date: 20180703
  Receipt Date: 20181017
  Transmission Date: 20190204
  Serious: Yes (Hospitalization)
  Sender: FDA-Public Use
  Company Number: US-ACTELION-A-US2018-174739

PATIENT
  Age: 57 Year
  Sex: Female

DRUGS (3)
  1. OPSUMIT [Suspect]
     Active Substance: MACITENTAN
     Indication: PULMONARY ARTERIAL HYPERTENSION
     Dosage: 10 MG, QD
     Route: 048
     Dates: start: 20170215
  2. OPSUMIT [Suspect]
     Active Substance: MACITENTAN
     Dosage: 5 MG, QD
     Route: 048
     Dates: start: 201806
  3. TADALAFIL. [Concomitant]
     Active Substance: TADALAFIL
     Dosage: 20 MG, QD
     Route: 048

REACTIONS (4)
  - Diarrhoea [Unknown]
  - Disease complication [Unknown]
  - Intentional product use issue [Unknown]
  - Dyspnoea [Recovering/Resolving]
